FAERS Safety Report 7597959-0 (Version None)
Quarter: 2011Q3

REPORT INFORMATION
  Report Type: 
  Country: None (occurrence: None)
  Receive Date: 20110708
  Receipt Date: 20110629
  Transmission Date: 20111222
  Serious: Yes (Hospitalization)
  Sender: FDA-Public Use
  Company Number: JP-SANOFI-AVENTIS-2011SA041654

PATIENT
  Age: 29 Year
  Sex: Female

DRUGS (2)
  1. ANAESTHETICS, GENERAL [Concomitant]
     Route: 008
  2. DESMOPRESSIN ACETATE [Suspect]
     Route: 045

REACTIONS (9)
  - CAESAREAN SECTION [None]
  - GESTATIONAL HYPERTENSION [None]
  - HEADACHE [None]
  - CONVULSION [None]
  - VISUAL IMPAIRMENT [None]
  - POSTERIOR REVERSIBLE ENCEPHALOPATHY SYNDROME [None]
  - FLUID RETENTION [None]
  - MATERNAL EXPOSURE DURING PREGNANCY [None]
  - HYPOXIA [None]
